FAERS Safety Report 4698646-9 (Version None)
Quarter: 2005Q2

REPORT INFORMATION
  Report Type: 
  Country: None (occurrence: None)
  Receive Date: 20050622
  Receipt Date: 20050614
  Transmission Date: 20051028
  Serious: Yes (Death)
  Sender: FDA-Public Use
  Company Number: 2005-06-0650

PATIENT
  Age: 44 Year
  Sex: Female

DRUGS (6)
  1. PEG-INTRON [Suspect]
     Indication: HEPATITIS C
     Dosage: SUBCUTANEOUS
     Route: 058
     Dates: start: 20040908
  2. RIBAVIRIN [Suspect]
     Indication: HEPATITIS C
     Dates: start: 20040908
  3. LASIX [Concomitant]
  4. PROZAC [Concomitant]
  5. SPIRONOLACTONE [Concomitant]
  6. ZINC SULFATE CAPSULE [Concomitant]

REACTIONS (3)
  - ASCITES [None]
  - PNEUMONIA [None]
  - RESPIRATORY DISTRESS [None]
